FAERS Safety Report 4394749-7 (Version None)
Quarter: 2004Q3

REPORT INFORMATION
  Report Type: 
  Country: None (occurrence: None)
  Receive Date: 20040706
  Receipt Date: 20040624
  Transmission Date: 20050211
  Serious: Yes (Death, Hospitalization)
  Sender: FDA-Public Use
  Company Number: HQWYE656824JUN04

PATIENT
  Age: 45 Year
  Sex: Female

DRUGS (3)
  1. ADVIL [Suspect]
     Indication: COUGH
     Dosage: 200 MG THREE TIMES DAILY ORAL
     Route: 048
     Dates: start: 20040521, end: 20040522
  2. ADVIL [Suspect]
     Indication: PYREXIA
     Dosage: 200 MG THREE TIMES DAILY ORAL
     Route: 048
     Dates: start: 20040521, end: 20040522
  3. DOLIPRANE (PARACETAMOL) [Concomitant]

REACTIONS (9)
  - BLOOD BILIRUBIN INCREASED [None]
  - BRADYCARDIA [None]
  - CARDIAC ARREST [None]
  - CHEST X-RAY ABNORMAL [None]
  - HYPOXIA [None]
  - PLEURAL EFFUSION [None]
  - PROTHROMBIN TIME RATIO DECREASED [None]
  - RENAL FAILURE [None]
  - SEPTIC SHOCK [None]
